FAERS Safety Report 23965411 (Version 6)
Quarter: 2025Q4

REPORT INFORMATION
  Report Type: Spontaneous
  Country: US (occurrence: US)
  Receive Date: 20240612
  Receipt Date: 20251218
  Transmission Date: 20260119
  Serious: Yes (Death, Hospitalization, Other)
  Sender: NOVARTIS
  Company Number: US-002147023-NVSC2024US122528

PATIENT
  Sex: Male
  Weight: 73.8 kg

DRUGS (1)
  1. LUTATHERA [Suspect]
     Active Substance: LUTETIUM OXODOTREOTIDE LU-177
     Indication: Neuroendocrine carcinoma
     Dosage: 200 UNK MQO
     Route: 065
     Dates: start: 20240418, end: 20240613

REACTIONS (6)
  - Neuroendocrine carcinoma [Fatal]
  - Malignant neoplasm progression [Fatal]
  - Oesophagitis [Unknown]
  - Pulmonary embolism [Unknown]
  - General physical health deterioration [Unknown]
  - Condition aggravated [Unknown]
